FAERS Safety Report 24175509 (Version 1)
Quarter: 2024Q3

REPORT INFORMATION
  Report Type: Spontaneous
  Country: US (occurrence: US)
  Receive Date: 20240805
  Receipt Date: 20240805
  Transmission Date: 20241016
  Serious: No
  Sender: EVOKE PHARMA
  Company Number: US-EVOKE PHARMA, INC.-2023EVO000181

PATIENT

DRUGS (1)
  1. GIMOTI [Suspect]
     Active Substance: METOCLOPRAMIDE HYDROCHLORIDE
     Indication: Impaired gastric emptying
     Dosage: 15 MILLIGRAM, ONE SPRAY INTO ONE NOSTRIL.
     Route: 045
     Dates: start: 2023, end: 2023

REACTIONS (4)
  - Adverse drug reaction [Unknown]
  - Drug intolerance [Unknown]
  - Product taste abnormal [Unknown]
  - Nausea [Unknown]

NARRATIVE: CASE EVENT DATE: 20230101
